FAERS Safety Report 7145661-1 (Version None)
Quarter: 2010Q4

REPORT INFORMATION
  Report Type: 
  Country: None (occurrence: None)
  Receive Date: 20101208
  Receipt Date: 20100825
  Transmission Date: 20110411
  Serious: No
  Sender: FDA-Public Use
  Company Number: US-ABBOTT-10P-163-0666192-00

PATIENT
  Age: 68 Year
  Sex: Female

DRUGS (9)
  1. ERYTHROMYCIN ESTOLATE [Suspect]
     Indication: PRODUCT USED FOR UNKNOWN INDICATION
  2. PREDNISONE [Concomitant]
     Indication: RHEUMATOID ARTHRITIS
  3. LEVOTHYROXINE SODIUM [Concomitant]
     Indication: THYROID DISORDER
  4. ZOLOFT [Concomitant]
     Indication: ANXIETY
  5. FOLIC ACID [Concomitant]
     Indication: PRODUCT USED FOR UNKNOWN INDICATION
  6. RESTASIS [Concomitant]
     Indication: KERATOCONJUNCTIVITIS SICCA
     Dosage: 0.05%
     Route: 047
  7. LUNESTA [Concomitant]
     Indication: INSOMNIA
     Dosage: AT BEDTIME
  8. RECLAST [Concomitant]
     Indication: OSTEOPOROSIS
     Route: 042
  9. VITAMIN D [Concomitant]
     Indication: PRODUCT USED FOR UNKNOWN INDICATION
     Dosage: DAILY

REACTIONS (1)
  - ABDOMINAL PAIN UPPER [None]
